FAERS Safety Report 24667912 (Version 1)
Quarter: 2024Q4

REPORT INFORMATION
  Report Type: Spontaneous
  Country: EG (occurrence: EG)
  Receive Date: 20241127
  Receipt Date: 20241127
  Transmission Date: 20250115
  Serious: Yes (Life-Threatening, Hospitalization)
  Sender: NOVO NORDISK
  Company Number: EG-NOVOPROD-1321209

PATIENT
  Sex: Female
  Weight: 65 kg

DRUGS (1)
  1. NOVORAPID [Suspect]
     Active Substance: INSULIN ASPART
     Indication: Type 1 diabetes mellitus
     Dosage: 100 IU, QD
     Route: 058
     Dates: start: 2020

REACTIONS (2)
  - Hyperglycaemia [Recovering/Resolving]
  - Blood ketone body [Recovering/Resolving]
